FAERS Safety Report 16706983 (Version 1)
Quarter: 2019Q3

REPORT INFORMATION
  Report Type: Spontaneous
  Country: GB (occurrence: GB)
  Receive Date: 20190815
  Receipt Date: 20190815
  Transmission Date: 20191004
  Serious: Yes (Death)
  Sender: FDA-Public Use
  Company Number: GB-TEVA-2019-GB-1091804

PATIENT
  Age: 77 Year
  Sex: Male
  Weight: 86 kg

DRUGS (2)
  1. METHYLPREDNISOLONE. [Suspect]
     Active Substance: METHYLPREDNISOLONE
     Indication: MANTLE CELL LYMPHOMA
     Dosage: ADMINISTERED OVER A PERIOD OF 15 HOURS.
     Route: 051
     Dates: start: 20190426, end: 20190427
  2. RASBURICASE [Concomitant]
     Active Substance: RASBURICASE
     Indication: PROPHYLAXIS

REACTIONS (4)
  - Metabolic acidosis [Fatal]
  - Arrhythmia [Fatal]
  - Cardiac arrest [Fatal]
  - Tumour lysis syndrome [Fatal]

NARRATIVE: CASE EVENT DATE: 20190429
